FAERS Safety Report 7447336-8 (Version None)
Quarter: 2011Q2

REPORT INFORMATION
  Report Type: 
  Country: None (occurrence: None)
  Receive Date: 20110429
  Receipt Date: 20101228
  Transmission Date: 20111010
  Serious: No
  Sender: FDA-Public Use
  Company Number: US-ASTRAZENECA-2010SE61125

PATIENT
  Sex: Female

DRUGS (1)
  1. NEXIUM [Suspect]
     Route: 048

REACTIONS (9)
  - THYROID DISORDER [None]
  - THERAPEUTIC RESPONSE UNEXPECTED [None]
  - CHEST PAIN [None]
  - MUSCULOSKELETAL PAIN [None]
  - DENTAL IMPLANTATION [None]
  - DRUG DOSE OMISSION [None]
  - PAIN IN JAW [None]
  - NECK PAIN [None]
  - DEPRESSED MOOD [None]
